FAERS Safety Report 11225013 (Version 1)
Quarter: 2015Q2

REPORT INFORMATION
  Report Type: Spontaneous
  Country: US (occurrence: None)
  Receive Date: 20150626
  Receipt Date: 20150626
  Transmission Date: 20150821
  Serious: No
  Sender: FDA-Public Use
  Company Number: None

PATIENT
  Age: 60 Year
  Sex: Male

DRUGS (1)
  1. ENBREL [Suspect]
     Active Substance: ETANERCEPT
     Indication: ILL-DEFINED DISORDER
     Route: 058
     Dates: start: 20150211, end: 20150624

REACTIONS (5)
  - Rash [None]
  - Pruritus [None]
  - Arthralgia [None]
  - Pain [None]
  - Blister [None]

NARRATIVE: CASE EVENT DATE: 20150601
